FAERS Safety Report 12701951 (Version 1)
Quarter: 2016Q3

REPORT INFORMATION
  Report Type: Spontaneous
  Country: US (occurrence: US)
  Receive Date: 20160831
  Receipt Date: 20160831
  Transmission Date: 20161109
  Serious: No
  Sender: FDA-Public Use
  Company Number: US-JAZZ-2016-US-007573

PATIENT
  Age: 33 Year
  Sex: Female
  Weight: 51.7 kg

DRUGS (16)
  1. FLUTICASONE PROPIONATE. [Concomitant]
     Active Substance: FLUTICASONE PROPIONATE
  2. ZOLMITRIPTAN. [Concomitant]
     Active Substance: ZOLMITRIPTAN
  3. NUVIGIL [Concomitant]
     Active Substance: ARMODAFINIL
     Indication: NARCOLEPSY
  4. ADVAIR HFA [Concomitant]
     Active Substance: FLUTICASONE PROPIONATE\SALMETEROL XINAFOATE
     Indication: ASTHMA
  5. BIOTIN [Concomitant]
     Active Substance: BIOTIN
  6. CLOBETASOL [Concomitant]
     Active Substance: CLOBETASOL
  7. VENTOLIN HFA [Concomitant]
     Active Substance: ALBUTEROL SULFATE
  8. XYREM [Suspect]
     Active Substance: SODIUM OXYBATE
     Indication: SOMNOLENCE
     Dosage: 2.25 G, BID
     Route: 048
     Dates: start: 20160415
  9. XYREM [Suspect]
     Active Substance: SODIUM OXYBATE
     Indication: NARCOLEPSY
  10. VENTOLIN [Concomitant]
     Active Substance: ALBUTEROL SULFATE
     Indication: ASTHMA
  11. FIORICET [Concomitant]
     Active Substance: ACETAMINOPHEN\BUTALBITAL\CAFFEINE
  12. FERROUS SULFATE. [Concomitant]
     Active Substance: FERROUS SULFATE
  13. FLUOCINOLONE [Concomitant]
     Active Substance: FLUOCINOLONE
  14. GASTROHEALTH [Concomitant]
  15. EPIPEN [Concomitant]
     Active Substance: EPINEPHRINE
  16. OMEPRAZOLE DR [Concomitant]
     Active Substance: OMEPRAZOLE

REACTIONS (6)
  - Chest pain [Not Recovered/Not Resolved]
  - Heart rate increased [Unknown]
  - Feeling jittery [Not Recovered/Not Resolved]
  - Dizziness [Not Recovered/Not Resolved]
  - Chest discomfort [Not Recovered/Not Resolved]
  - Breast pain [Unknown]

NARRATIVE: CASE EVENT DATE: 20160416
